FAERS Safety Report 7070623-2 (Version None)
Quarter: 2010Q4

REPORT INFORMATION
  Report Type: 
  Country: None (occurrence: None)
  Receive Date: 20101029
  Receipt Date: 20101025
  Transmission Date: 20110411
  Serious: Yes (Hospitalization, Other)
  Sender: FDA-Public Use
  Company Number: US-PFIZER INC-2010136240

PATIENT
  Sex: Female
  Weight: 63 kg

DRUGS (6)
  1. CELEBREX [Suspect]
     Indication: ARTHRITIS
     Dosage: UNK
     Route: 048
     Dates: start: 20100601, end: 20100601
  2. FEMARA [Concomitant]
     Indication: NEOPLASM MALIGNANT
     Dosage: UNK
  3. METFORMIN [Concomitant]
     Indication: DIABETES MELLITUS
     Dosage: UNK
  4. GLIPIZIDE [Concomitant]
     Indication: DIABETES MELLITUS
     Dosage: UNK
  5. LODINE [Concomitant]
     Dosage: UNK
  6. FLEXERIL [Concomitant]
     Dosage: UNK

REACTIONS (9)
  - ACTIVITIES OF DAILY LIVING IMPAIRED [None]
  - BLOOD BILIRUBIN ABNORMAL [None]
  - FEELING ABNORMAL [None]
  - LIVER DISORDER [None]
  - MALAISE [None]
  - POISONING [None]
  - PRURITUS GENERALISED [None]
  - WEIGHT DECREASED [None]
  - YELLOW SKIN [None]
